FAERS Safety Report 24245498 (Version 3)
Quarter: 2025Q4

REPORT INFORMATION
  Report Type: Spontaneous
  Country: CA (occurrence: CA)
  Receive Date: 20240824
  Receipt Date: 20251227
  Transmission Date: 20260117
  Serious: Yes (Hospitalization, Other)
  Sender: CELLTRION
  Company Number: CA-CELLTRION INC.-2021CA019641

PATIENT

DRUGS (13)
  1. TRUXIMA [Suspect]
     Active Substance: RITUXIMAB-ABBS
     Indication: Vasculitis
     Dosage: 500 MG, 1 DOSE
     Route: 042
     Dates: start: 20220428
  2. TRUXIMA [Suspect]
     Active Substance: RITUXIMAB-ABBS
     Dosage: 500 MG, Q6MONTHS
     Route: 042
     Dates: start: 20220328
  3. TRUXIMA [Suspect]
     Active Substance: RITUXIMAB-ABBS
     Dosage: 500 MG, Q6MONTHS
     Route: 042
     Dates: start: 20220428
  4. TRUXIMA [Suspect]
     Active Substance: RITUXIMAB-ABBS
     Dosage: 500 MG EVERY 6 MONTHS
     Route: 042
     Dates: start: 20250625
  5. METFORMIN [Concomitant]
     Active Substance: METFORMIN HYDROCHLORIDE
     Dosage: UNK
  6. ATORVASTATIN [Concomitant]
     Active Substance: ATORVASTATIN
  7. ATIVAN [Concomitant]
     Active Substance: LORAZEPAM
  8. ASPIRIN [Concomitant]
     Active Substance: ASPIRIN
  9. METOPROLOL [Concomitant]
     Active Substance: METOPROLOL
  10. MELATONIN [Concomitant]
     Active Substance: MELATONIN
  11. TYLENOL [Concomitant]
     Active Substance: ACETAMINOPHEN
     Indication: Premedication
     Dosage: 650 MG
     Route: 048
  12. BENADRYL [Concomitant]
     Active Substance: DIPHENHYDRAMINE HYDROCHLORIDE
     Indication: Premedication
     Dosage: 50 MG
     Route: 048
  13. SOLU-MEDROL [Concomitant]
     Active Substance: METHYLPREDNISOLONE SODIUM SUCCINATE
     Indication: Premedication
     Dosage: 100 MG
     Route: 042

REACTIONS (5)
  - Bladder cancer [Unknown]
  - Colostomy closure [Unknown]
  - Surgery [Unknown]
  - Intentional dose omission [Unknown]
  - Off label use [Unknown]

NARRATIVE: CASE EVENT DATE: 20230301
